FAERS Safety Report 10265735 (Version 2)
Quarter: 2014Q3

REPORT INFORMATION
  Report Type: Spontaneous
  Country: FR (occurrence: FR)
  Receive Date: 20140627
  Receipt Date: 20140808
  Transmission Date: 20150326
  Serious: Yes (Hospitalization)
  Sender: FDA-Public Use
  Company Number: FR-GE HEALTHCARE MEDICAL DIAGNOSTICS-VISP-PR-1406S-0290

PATIENT
  Age: 63 Year
  Sex: Female

DRUGS (23)
  1. LANTUS [Concomitant]
     Active Substance: INSULIN GLARGINE
  2. AERIUS [Suspect]
     Active Substance: DESLORATADINE
     Indication: PRURITUS
     Route: 048
     Dates: start: 20140514, end: 20140520
  3. KAREGIC [Concomitant]
  4. SPIRIVA [Concomitant]
     Active Substance: TIOTROPIUM BROMIDE MONOHYDRATE
  5. VENOFER [Concomitant]
     Active Substance: IRON SUCROSE
  6. VISIPAQUE [Suspect]
     Active Substance: IODIXANOL
     Indication: DIAGNOSTIC PROCEDURE
  7. KAYEXALATE [Concomitant]
     Active Substance: SODIUM POLYSTYRENE SULFONATE
  8. DEPAKOTE [Concomitant]
     Active Substance: DIVALPROEX SODIUM
  9. CARDENSIEL [Concomitant]
     Active Substance: BISOPROLOL FUMARATE
  10. CALCIDIA [Concomitant]
     Active Substance: CALCIUM POLYCARBOPHIL
  11. ZYMAD [Concomitant]
     Active Substance: CHOLECALCIFEROL
  12. COUMADINE [Suspect]
     Active Substance: WARFARIN SODIUM
     Route: 048
     Dates: start: 20140514, end: 20140519
  13. OSLIF [Concomitant]
     Active Substance: INDACATEROL
  14. FUROSEMIDE. [Concomitant]
     Active Substance: FUROSEMIDE
  15. SEROQUEL [Concomitant]
     Active Substance: QUETIAPINE FUMARATE
  16. ARANESP [Concomitant]
     Active Substance: DARBEPOETIN ALFA
     Indication: DIALYSIS
  17. CEFACIDAL [Suspect]
     Active Substance: CEFAZOLIN SODIUM
     Route: 042
     Dates: start: 20140509, end: 20140510
  18. PHOSPHOSORB [Concomitant]
  19. CALCIUM FOLINATE [Concomitant]
     Active Substance: LEUCOVORIN CALCIUM
  20. VISIPAQUE [Suspect]
     Active Substance: IODIXANOL
     Indication: ARTERIOVENOUS FISTULA THROMBOSIS
     Dosage: DOSE NOT REPORTED
     Route: 042
     Dates: start: 20140509, end: 20140509
  21. NOVONORM [Concomitant]
     Active Substance: REPAGLINIDE
  22. DEDROGYL [Concomitant]
     Active Substance: CALCIFEDIOL
  23. ATORVASTATINE [Concomitant]
     Active Substance: ATORVASTATIN

REACTIONS (1)
  - Rash maculo-papular [Recovered/Resolved]

NARRATIVE: CASE EVENT DATE: 20140519
